FAERS Safety Report 16890543 (Version 2)
Quarter: 2020Q3

REPORT INFORMATION
  Report Type: Other
  Country: US (occurrence: US)
  Receive Date: 20191007
  Receipt Date: 20200924
  Transmission Date: 20201102
  Serious: Yes (Other)
  Sender: FDA-Public Use
  Company Number: US-ROCHE-1674001

PATIENT

DRUGS (2)
  1. VEMURAFENIB. [Suspect]
     Active Substance: VEMURAFENIB
     Indication: NEOPLASM MALIGNANT
     Route: 048
  2. EVEROLIMUS. [Suspect]
     Active Substance: EVEROLIMUS
     Indication: NEOPLASM MALIGNANT
     Dosage: FOR 28 DAYS CYCLE
     Route: 048

REACTIONS (7)
  - Hyperglycaemia [Unknown]
  - Renal failure [Unknown]
  - Rash [Unknown]
  - Thrombocytopenia [Unknown]
  - Hypertriglyceridaemia [Unknown]
  - Fatigue [Unknown]
  - Anaemia [Unknown]
